FAERS Safety Report 6730657-1 (Version None)
Quarter: 2010Q2

REPORT INFORMATION
  Report Type: 
  Country: None (occurrence: None)
  Receive Date: 20100514
  Receipt Date: 20100430
  Transmission Date: 20101027
  Serious: Yes (Hospitalization)
  Sender: FDA-Public Use
  Company Number: 8055190

PATIENT
  Sex: Female
  Weight: 86 kg

DRUGS (7)
  1. CERTOLIZUMAB PEGOL (CERTOLIZUMAB PEGOL) [Suspect]
     Indication: RHEUMATOID ARTHRITIS
     Dosage: (200 MG 1X/2 WEEKS SUBCUTANEOUS)
     Route: 058
     Dates: start: 20090807, end: 20091113
  2. DICLOFENAC [Concomitant]
  3. PREDNISOLONE [Concomitant]
  4. METHOTREXATE [Concomitant]
  5. FOLIC ACID [Concomitant]
  6. METOPROLOL TARTRATE [Concomitant]
  7. AMLODIPINE BESYLATE AND VALSARTAN [Concomitant]

REACTIONS (5)
  - DIVERTICULAR PERFORATION [None]
  - DIVERTICULITIS [None]
  - POST PROCEDURAL FISTULA [None]
  - PROCEDURAL PAIN [None]
  - WOUND ABSCESS [None]
